FAERS Safety Report 8327370-6 (Version None)
Quarter: 2012Q2

REPORT INFORMATION
  Report Type: 
  Country: None (occurrence: None)
  Receive Date: 20120502
  Receipt Date: 20120425
  Transmission Date: 20120825
  Serious: No
  Sender: FDA-Public Use
  Company Number: US-BIOGENIDEC-2012BI014502

PATIENT
  Age: 31 Year
  Sex: Female

DRUGS (2)
  1. AVONEX [Concomitant]
     Indication: MULTIPLE SCLEROSIS
     Route: 030
  2. TYSABRI [Suspect]
     Indication: MULTIPLE SCLEROSIS
     Route: 042
     Dates: start: 20120126

REACTIONS (7)
  - DIZZINESS [None]
  - VERTIGO [None]
  - PAIN IN EXTREMITY [None]
  - DEPRESSED MOOD [None]
  - COORDINATION ABNORMAL [None]
  - FEELING ABNORMAL [None]
  - HEADACHE [None]
